FAERS Safety Report 17741502 (Version 1)
Quarter: 2020Q2

REPORT INFORMATION
  Report Type: Spontaneous
  Country: CN (occurrence: CN)
  Receive Date: 20200504
  Receipt Date: 20200504
  Transmission Date: 20200714
  Serious: Yes (Other)
  Sender: FDA-Public Use
  Company Number: NVSC2020CN118999

PATIENT

DRUGS (2)
  1. VOROLANIB [Suspect]
     Active Substance: VOROLANIB
     Indication: CLEAR CELL RENAL CELL CARCINOMA
     Dosage: 200 MG, QD
     Route: 065
  2. EVEROLIMUS. [Suspect]
     Active Substance: EVEROLIMUS
     Indication: CLEAR CELL RENAL CELL CARCINOMA
     Dosage: 5 MG, QD
     Route: 065

REACTIONS (1)
  - Blood creatine phosphokinase increased [Unknown]
